FAERS Safety Report 10202709 (Version 2)
Quarter: 2014Q2

REPORT INFORMATION
  Report Type: Spontaneous
  Country: US (occurrence: US)
  Receive Date: 20140528
  Receipt Date: 20140610
  Transmission Date: 20141212
  Serious: Yes (Hospitalization, Other)
  Sender: FDA-Public Use
  Company Number: DE-ASTRAZENECA-2014SE36647

PATIENT
  Age: 13 Year
  Sex: Female
  Weight: 59 kg

DRUGS (6)
  1. OMEPRAZOLE [Suspect]
     Dosage: UNKNOWN DOSE ONCE
     Route: 048
  2. NAPROXEN SODIUM [Suspect]
     Dosage: UNKNOWN DOSE ONCE
     Route: 048
  3. ACETAMINOPHEN (NON-AZ DRUG) [Suspect]
  4. DIPHENHYDRAMINE [Suspect]
     Dosage: UNKNOWN DOSE ONCE
     Route: 048
  5. BUPROPION [Suspect]
  6. CITALOPRAM [Suspect]

REACTIONS (6)
  - Intentional overdose [Unknown]
  - Anticholinergic syndrome [Unknown]
  - Serotonin syndrome [Unknown]
  - Rhabdomyolysis [Unknown]
  - Electrocardiogram QT prolonged [Unknown]
  - Adrenergic syndrome [Unknown]
